FAERS Safety Report 8134017-0 (Version None)
Quarter: 2012Q1

REPORT INFORMATION
  Report Type: 
  Country: None (occurrence: None)
  Receive Date: 20120214
  Receipt Date: 20120203
  Transmission Date: 20120608
  Serious: No
  Sender: FDA-Public Use
  Company Number: US-ASTRAZENECA-2012SE04519

PATIENT
  Age: 66 Year
  Sex: Male

DRUGS (1)
  1. NEXIUM [Suspect]
     Indication: GASTROOESOPHAGEAL REFLUX DISEASE
     Route: 048
     Dates: start: 20070101

REACTIONS (3)
  - OFF LABEL USE [None]
  - DRUG DOSE OMISSION [None]
  - BARRETT'S OESOPHAGUS [None]
